FAERS Safety Report 12437397 (Version 1)
Quarter: 2016Q2

REPORT INFORMATION
  Report Type: Spontaneous
  Country: US (occurrence: None)
  Receive Date: 20160603
  Receipt Date: 20160603
  Transmission Date: 20160815
  Serious: No
  Sender: FDA-Public Use
  Company Number: None

PATIENT
  Age: 45 Year
  Sex: Male
  Weight: 68.04 kg

DRUGS (2)
  1. THRIVE M [Suspect]
     Active Substance: DIETARY SUPPLEMENT
     Dosage: 60 CAPSULE (S) IN THE MORNING TAKEN BY MOUTH
     Route: 048
     Dates: start: 20160525, end: 20160601
  2. METHYLSYNEPHRINE [Suspect]
     Active Substance: OXILOFRINE

REACTIONS (1)
  - Product formulation issue [None]

NARRATIVE: CASE EVENT DATE: 20160530
